FAERS Safety Report 6981975-3 (Version None)
Quarter: 2010Q3

REPORT INFORMATION
  Report Type: 
  Country: None (occurrence: None)
  Receive Date: 20100914
  Receipt Date: 20091001
  Transmission Date: 20110219
  Serious: No
  Sender: FDA-Public Use
  Company Number: US-PFIZER INC-2009278930

PATIENT
  Sex: Male

DRUGS (4)
  1. LYRICA [Suspect]
     Indication: ANXIETY
     Dosage: 25 MG, 2X/DAY
     Dates: start: 20090901
  2. LYRICA [Suspect]
     Indication: DEPRESSION
  3. ALPRAZOLAM [Suspect]
     Dosage: UNK
  4. LOVAZA [Concomitant]

REACTIONS (2)
  - AGITATION [None]
  - ANXIETY [None]
